FAERS Safety Report 8340916-7 (Version None)
Quarter: 2012Q2

REPORT INFORMATION
  Report Type: 
  Country: None (occurrence: None)
  Receive Date: 20120507
  Receipt Date: 20120424
  Transmission Date: 20120825
  Serious: Yes (Hospitalization, Other)
  Sender: FDA-Public Use
  Company Number: PHHO2011KR10740

PATIENT
  Sex: Female
  Weight: 62.2 kg

DRUGS (4)
  1. AFINITOR [Suspect]
     Dosage: 2.5 MG
     Route: 048
     Dates: start: 20110701
  2. AFINITOR [Suspect]
     Dosage: NO TREATMENT RECEIVED
     Dates: start: 20110623
  3. CHOP [Concomitant]
     Indication: T-CELL LYMPHOMA
     Dosage: UNK
     Dates: start: 20110610
  4. AFINITOR [Suspect]
     Indication: T-CELL LYMPHOMA
     Dosage: 5 MG, QD
     Route: 048
     Dates: start: 20110502, end: 20110622

REACTIONS (2)
  - FEBRILE NEUTROPENIA [None]
  - THROMBOCYTOPENIA [None]
